FAERS Safety Report 8914542 (Version 2)
Quarter: 2014Q2

REPORT INFORMATION
  Report Type: Spontaneous
  Country: FR (occurrence: FR)
  Receive Date: 20121119
  Receipt Date: 20131018
  Transmission Date: 20141212
  Serious: Yes (Other)
  Sender: FDA-Public Use
  Company Number: FR-PFIZER INC-2012283484

PATIENT
  Sex: Female

DRUGS (1)
  1. MINIDRIL [Suspect]
     Dosage: ETHYNILESTRADIOL 30 ?G/LEVONORGESTREL 150 ?G

REACTIONS (1)
  - Neutropenia [Unknown]
